FAERS Safety Report 25119498 (Version 2)
Quarter: 2025Q2

REPORT INFORMATION
  Report Type: Report from Study
  Country: US (occurrence: US)
  Receive Date: 20250325
  Receipt Date: 20250422
  Transmission Date: 20250716
  Serious: Yes (Other)
  Sender: NOVARTIS
  Company Number: US-002147023-NVSC2024US223447

PATIENT
  Age: 50 Year
  Sex: Female

DRUGS (4)
  1. KESIMPTA [Suspect]
     Active Substance: OFATUMUMAB
     Indication: Clinically isolated syndrome
     Route: 058
     Dates: start: 20241112
  2. KESIMPTA [Suspect]
     Active Substance: OFATUMUMAB
     Indication: Relapsing-remitting multiple sclerosis
     Dosage: 20 MG, QMO
     Route: 058
     Dates: start: 202411
  3. KESIMPTA [Suspect]
     Active Substance: OFATUMUMAB
     Indication: Progressive multiple sclerosis
  4. KESIMPTA [Suspect]
     Active Substance: OFATUMUMAB
     Indication: Relapsing multiple sclerosis

REACTIONS (12)
  - Pelvic fracture [Recovering/Resolving]
  - Influenza [Recovering/Resolving]
  - Musculoskeletal stiffness [Recovering/Resolving]
  - Memory impairment [Not Recovered/Not Resolved]
  - Road traffic accident [Recovering/Resolving]
  - Lower limb fracture [Recovering/Resolving]
  - Contusion [Recovering/Resolving]
  - Scratch [Recovering/Resolving]
  - Tibia fracture [Recovering/Resolving]
  - Pain [Recovering/Resolving]
  - Movement disorder [Unknown]
  - Therapeutic product effect delayed [Unknown]

NARRATIVE: CASE EVENT DATE: 20241212
